FAERS Safety Report 21518658 (Version 1)
Quarter: 2022Q4

REPORT INFORMATION
  Report Type: Report from Study
  Country: US (occurrence: US)
  Receive Date: 20221028
  Receipt Date: 20221028
  Transmission Date: 20230112
  Serious: No
  Sender: FDA-Public Use
  Company Number: US-ABBVIE-4174383

PATIENT
  Sex: Female

DRUGS (2)
  1. VENCLEXTA [Suspect]
     Active Substance: VENETOCLAX
     Indication: B-cell small lymphocytic lymphoma
     Route: 048
     Dates: start: 20210928
  2. AZITHROMYCIN DIHYDRATE [Concomitant]
     Active Substance: AZITHROMYCIN DIHYDRATE
     Indication: Cough

REACTIONS (1)
  - Cough [Unknown]
